FAERS Safety Report 7837817 (Version 3)
Quarter: 2013Q2

REPORT INFORMATION
  Report Type: Spontaneous
  Country: GB (occurrence: GB)
  Receive Date: 20110302
  Receipt Date: 20130528
  Transmission Date: 20140414
  Serious: Yes (Congenital Anomaly)
  Sender: FDA-Public Use
  Company Number: GB-ASTRAZENECA-2011SE09791

PATIENT
  Age: 0 Week
  Sex: Female
  Weight: 3.5 kg

DRUGS (5)
  1. OMEPRAZOLE [Suspect]
     Indication: PROPHYLAXIS AGAINST GASTROINTESTINAL ULCER
     Route: 064
  2. CO-CODAMOL [Suspect]
     Indication: PAIN
     Dosage: 30/500, TWO TABLETS AS NEEDED
     Route: 064
  3. FOLIC ACID [Suspect]
     Indication: PREGNANCY
     Route: 064
  4. HYDROXOCOBALAMIN [Suspect]
     Indication: VITAMIN B12 DEFICIENCY
     Route: 064
  5. LYRICA [Suspect]
     Indication: PAIN
     Route: 064

REACTIONS (2)
  - Developmental hip dysplasia [Unknown]
  - Pelvic deformity [Unknown]
